FAERS Safety Report 25888143 (Version 1)
Quarter: 2025Q4

REPORT INFORMATION
  Report Type: Spontaneous
  Country: US (occurrence: US)
  Receive Date: 20251007
  Receipt Date: 20251007
  Transmission Date: 20260117
  Serious: No
  Sender: BIOLINERX
  Company Number: US-MIMS-GAMIMC-942

PATIENT
  Age: 60 Year

DRUGS (2)
  1. APHEXDA [Suspect]
     Active Substance: MOTIXAFORTIDE ACETATE
     Indication: Apheresis
     Dosage: UNK, UNK
     Route: 065
  2. CYTOXAN [Concomitant]
     Active Substance: CYCLOPHOSPHAMIDE
     Indication: Product used for unknown indication

REACTIONS (2)
  - Rash [Unknown]
  - Pruritus [Unknown]
